FAERS Safety Report 15386073 (Version 2)
Quarter: 2019Q1

REPORT INFORMATION
  Report Type: Spontaneous
  Country: JP (occurrence: JP)
  Receive Date: 20180914
  Receipt Date: 20190207
  Transmission Date: 20190417
  Serious: Yes (Death, Hospitalization)
  Sender: FDA-Public Use
  Company Number: JP-ACTELION-A-CH2018-178510

PATIENT
  Age: 60 Year
  Sex: Male

DRUGS (7)
  1. DIART [Concomitant]
     Active Substance: AZOSEMIDE
  2. ADCIRCA [Concomitant]
     Active Substance: TADALAFIL
     Dosage: UNK
     Dates: end: 20180813
  3. OPSUMIT [Suspect]
     Active Substance: MACITENTAN
     Indication: PULMONARY ARTERIAL HYPERTENSION
     Dosage: 10 MG, QD
     Route: 048
     Dates: start: 20170821, end: 20180825
  4. ADEMPAS [Concomitant]
     Active Substance: RIOCIGUAT
     Dosage: 1.5 MG, UNK
     Dates: start: 20180820
  5. PREDONINE [Concomitant]
     Active Substance: PREDNISOLONE
  6. UPTRAVI [Concomitant]
     Active Substance: SELEXIPAG
     Route: 048
  7. OXYGEN. [Concomitant]
     Active Substance: OXYGEN

REACTIONS (7)
  - Oxygen saturation decreased [Fatal]
  - Dyspnoea [Fatal]
  - Pulmonary fibrosis [Fatal]
  - Condition aggravated [Fatal]
  - Pulmonary arterial pressure increased [Fatal]
  - Pulmonary arterial wedge pressure increased [Fatal]
  - Heart rate decreased [Fatal]

NARRATIVE: CASE EVENT DATE: 20180723
